FAERS Safety Report 6768922-4 (Version None)
Quarter: 2010Q2

REPORT INFORMATION
  Report Type: 
  Country: None (occurrence: None)
  Receive Date: 20100615
  Receipt Date: 20100607
  Transmission Date: 20101027
  Serious: Yes (Other)
  Sender: FDA-Public Use
  Company Number: US-BIOGENIDEC-2009BI033754

PATIENT
  Age: 32 Year
  Sex: Female

DRUGS (4)
  1. TYSABRI [Suspect]
     Indication: MULTIPLE SCLEROSIS
     Route: 042
     Dates: start: 20070316, end: 20081230
  2. TYSABRI [Suspect]
     Route: 042
     Dates: start: 20090828, end: 20090828
  3. ZANAFLEX [Concomitant]
  4. PRENATAL VITAMINS [Concomitant]

REACTIONS (2)
  - ARRESTED LABOUR [None]
  - PREGNANCY [None]
